FAERS Safety Report 11317876 (Version 2)
Quarter: 2015Q3

REPORT INFORMATION
  Report Type: Spontaneous
  Country: JP (occurrence: JP)
  Receive Date: 20150728
  Receipt Date: 20150807
  Transmission Date: 20151125
  Serious: Yes (Other)
  Sender: FDA-Public Use
  Company Number: PHHY2015JP089551

PATIENT
  Age: 44 Year
  Sex: Female
  Weight: 55 kg

DRUGS (11)
  1. BUFFERIN [Suspect]
     Active Substance: ASPIRIN
     Indication: BONE PAIN
     Route: 065
  2. FLUTICASONE FUROATE [Concomitant]
     Active Substance: FLUTICASONE FUROATE
     Indication: RHINITIS
     Route: 065
  3. TRAMADOL HYDROCHLORIDE. [Concomitant]
     Active Substance: TRAMADOL HYDROCHLORIDE
     Dosage: 100 MG, UNK
     Route: 042
  4. FLOMOXEF [Concomitant]
     Active Substance: FLOMOXEF
     Indication: ANTIBIOTIC PROPHYLAXIS
     Route: 065
  5. TIARAMIDE HCL [Concomitant]
     Indication: PAIN
     Route: 065
  6. TRAMADOL HYDROCHLORIDE. [Concomitant]
     Active Substance: TRAMADOL HYDROCHLORIDE
     Indication: POSTOPERATIVE ANALGESIA
     Dosage: 50 MG, UNK
     Route: 048
  7. DICLOFENAC [Suspect]
     Active Substance: DICLOFENAC
     Indication: BONE PAIN
     Route: 065
  8. MIDAZOLAM [Concomitant]
     Active Substance: MIDAZOLAM\MIDAZOLAM HYDROCHLORIDE
     Indication: SEDATION
     Route: 042
  9. SYMBICORT [Suspect]
     Active Substance: BUDESONIDE\FORMOTEROL FUMARATE DIHYDRATE
     Indication: ASTHMA
     Route: 055
  10. FEXOFENADINE [Concomitant]
     Active Substance: FEXOFENADINE\FEXOFENADINE HYDROCHLORIDE
     Indication: ASTHMA
     Route: 065
  11. LOXOPROFEN [Suspect]
     Active Substance: LOXOPROFEN
     Indication: BONE PAIN
     Route: 065

REACTIONS (3)
  - Drug intolerance [Unknown]
  - Asthma [Unknown]
  - Aspirin-exacerbated respiratory disease [Unknown]
